FAERS Safety Report 15073988 (Version 1)
Quarter: 2018Q2

REPORT INFORMATION
  Report Type: Spontaneous
  Country: PT (occurrence: PT)
  Receive Date: 20180627
  Receipt Date: 20180627
  Transmission Date: 20180711
  Serious: Yes (Other)
  Sender: FDA-Public Use
  Company Number: PT-TEVA-2018-PT-912237

PATIENT
  Age: 47 Year
  Sex: Female
  Weight: 87 kg

DRUGS (7)
  1. TENORETIC MITE [Concomitant]
     Dosage: 1 DOSAGE FORMS DAILY;
     Route: 048
  2. ANASTROZOL TEVA [Suspect]
     Active Substance: ANASTROZOLE
     Indication: BREAST CANCER
     Dosage: 1 MILLICURIES DAILY;
     Route: 048
     Dates: start: 20180126
  3. CALCITAB [Concomitant]
     Dosage: 1500 MILLIGRAM DAILY;
     Route: 048
  4. ESOMEPRAZOL TOLIFE [Concomitant]
     Dosage: 20 MILLIGRAM DAILY;
     Route: 048
     Dates: start: 20180220
  5. PACLITAXEL. [Concomitant]
     Active Substance: PACLITAXEL
     Dosage: HE DID 12 CYCLES A WEEK
     Route: 065
     Dates: end: 20180104
  6. EUTIROX [Concomitant]
     Active Substance: LEVOTHYROXINE SODIUM
     Dosage: 137 MICROGRAM DAILY;
     Route: 048
     Dates: start: 20180207
  7. ROCALTROL [Concomitant]
     Active Substance: CALCITRIOL
     Dosage: .25 GRAM DAILY;
     Route: 048
     Dates: start: 20180417

REACTIONS (5)
  - Pain in extremity [Not Recovered/Not Resolved]
  - Bone pain [Not Recovered/Not Resolved]
  - Arthralgia [Not Recovered/Not Resolved]
  - Musculoskeletal pain [Not Recovered/Not Resolved]
  - Hot flush [Not Recovered/Not Resolved]

NARRATIVE: CASE EVENT DATE: 201802
